FAERS Safety Report 22541517 (Version 1)
Quarter: 2023Q2

REPORT INFORMATION
  Report Type: Spontaneous
  Country: US (occurrence: None)
  Receive Date: 20230608
  Receipt Date: 20230608
  Transmission Date: 20230721
  Serious: No
  Sender: FDA-Public Use
  Company Number: None

PATIENT
  Age: 56 Year
  Sex: 0

DRUGS (1)
  1. GLATIRAMER [Suspect]
     Active Substance: GLATIRAMER

REACTIONS (1)
  - Dizziness [None]
